FAERS Safety Report 9852631 (Version 3)
Quarter: 2014Q1

REPORT INFORMATION
  Report Type: Spontaneous
  Country: US (occurrence: US)
  Receive Date: 20140129
  Receipt Date: 20140313
  Transmission Date: 20141002
  Serious: Yes (Other)
  Sender: FDA-Public Use
  Company Number: US-JNJFOC-20140114912

PATIENT
  Age: 16 Year
  Sex: Female

DRUGS (2)
  1. REMICADE [Suspect]
     Indication: COLITIS ULCERATIVE
     Route: 042
  2. LEXAPRO [Concomitant]
     Route: 065

REACTIONS (3)
  - Depression [Unknown]
  - Obsessive-compulsive disorder [Unknown]
  - Inflammation [Not Recovered/Not Resolved]
